FAERS Safety Report 6901783-9 (Version None)
Quarter: 2010Q3

REPORT INFORMATION
  Report Type: 
  Country: None (occurrence: None)
  Receive Date: 20100802
  Receipt Date: 20100802
  Transmission Date: 20110219
  Serious: Yes (Life-Threatening, Hospitalization)
  Sender: FDA-Public Use
  Company Number: None

PATIENT
  Sex: Female
  Weight: 74.8435 kg

DRUGS (1)
  1. WELLBUTRIN [Suspect]

REACTIONS (3)
  - EPILEPSY [None]
  - HEAD INJURY [None]
  - SKIN LACERATION [None]
